FAERS Safety Report 12603440 (Version 2)
Quarter: 2016Q3

REPORT INFORMATION
  Report Type: Report from Study
  Country: US (occurrence: US)
  Receive Date: 20160728
  Receipt Date: 20160803
  Transmission Date: 20161109
  Serious: Yes (Hospitalization)
  Sender: FDA-Public Use
  Company Number: US-IPSEN-CABO-16006766

PATIENT
  Sex: Male

DRUGS (27)
  1. ASPIRIN. [Concomitant]
     Active Substance: ASPIRIN
  2. SYMBICORT [Concomitant]
     Active Substance: BUDESONIDE\FORMOTEROL FUMARATE DIHYDRATE
  3. LEXAPRO [Concomitant]
     Active Substance: ESCITALOPRAM OXALATE
  4. TRICOR [Concomitant]
     Active Substance: FENOFIBRATE
  5. LASIX [Concomitant]
     Active Substance: FUROSEMIDE
  6. FOLTANX [Concomitant]
  7. ALBUTEROL. [Concomitant]
     Active Substance: ALBUTEROL
  8. MYCOSTATIN [Concomitant]
     Active Substance: NYSTATIN
  9. OXYCODONE [Concomitant]
     Active Substance: OXYCODONE
  10. NEURONTIN [Concomitant]
     Active Substance: GABAPENTIN
  11. MVI [Concomitant]
     Active Substance: VITAMINS
  12. OMEPRAZOLE. [Concomitant]
     Active Substance: OMEPRAZOLE
  13. CABOMETYX [Suspect]
     Active Substance: CABOZANTINIB S-MALATE
     Indication: NEOPLASM MALIGNANT
  14. VITAMIN C [Concomitant]
     Active Substance: ASCORBIC ACID
  15. FIORICET [Concomitant]
     Active Substance: ACETAMINOPHEN\BUTALBITAL\CAFFEINE
  16. DUONEB [Concomitant]
     Active Substance: ALBUTEROL SULFATE\IPRATROPIUM BROMIDE
  17. DELTASONE [Concomitant]
     Active Substance: PREDNISONE
  18. IMITREX [Concomitant]
     Active Substance: SUMATRIPTAN SUCCINATE
  19. CABOMETYX [Suspect]
     Active Substance: CABOZANTINIB S-MALATE
     Indication: RENAL CANCER
     Dosage: 60 MG, QD
     Route: 048
     Dates: start: 20160520, end: 201607
  20. LOTRISONE [Concomitant]
     Active Substance: BETAMETHASONE DIPROPIONATE\CLOTRIMAZOLE
  21. KENALOG [Concomitant]
     Active Substance: TRIAMCINOLONE ACETONIDE
  22. COLACE [Concomitant]
     Active Substance: DOCUSATE SODIUM
  23. LOVENOX [Concomitant]
     Active Substance: ENOXAPARIN SODIUM
  24. PROCARDIA [Concomitant]
     Active Substance: NIFEDIPINE
  25. ZOFRAN [Concomitant]
     Active Substance: ONDANSETRON HYDROCHLORIDE
  26. AMBIEN [Concomitant]
     Active Substance: ZOLPIDEM TARTRATE
  27. ATIVAN [Concomitant]
     Active Substance: LORAZEPAM

REACTIONS (1)
  - Unevaluable event [Unknown]
